FAERS Safety Report 18506206 (Version 5)
Quarter: 2020Q4

REPORT INFORMATION
  Report Type: Report from Study
  Country: FR (occurrence: FR)
  Receive Date: 20201116
  Receipt Date: 20201217
  Transmission Date: 20210114
  Serious: Yes (Hospitalization)
  Sender: FDA-Public Use
  Company Number: FR-SA-2020SA315665

PATIENT

DRUGS (9)
  1. ISATUXIMAB [Suspect]
     Active Substance: ISATUXIMAB
     Indication: PLASMA CELL MYELOMA
     Dosage: 10 MG/KG, QW
     Route: 042
     Dates: start: 20201105, end: 20201105
  2. ZELITREX [Concomitant]
     Active Substance: VALACYCLOVIR HYDROCHLORIDE
     Indication: INFECTION PROPHYLAXIS
     Dosage: 500 MG
     Route: 065
  3. XATRAL [Concomitant]
     Active Substance: ALFUZOSIN
     Indication: PROSTATIC ADENOMA
     Dosage: 10 MG
     Route: 065
  4. DEXAMETHASONE. [Suspect]
     Active Substance: DEXAMETHASONE
     Indication: PLASMA CELL MYELOMA
     Dosage: 40 MG, QW
     Route: 048
     Dates: start: 20201105, end: 20201105
  5. PREGABALINE [Concomitant]
     Active Substance: PREGABALIN
     Indication: NEURALGIA
     Dosage: 150 MG
     Route: 065
  6. POMALIDOMIDE. [Suspect]
     Active Substance: POMALIDOMIDE
     Indication: PLASMA CELL MYELOMA
     Dosage: 4 MG, QD
     Route: 048
     Dates: start: 20201105, end: 20201105
  7. LANSOPRAZOLE. [Concomitant]
     Active Substance: LANSOPRAZOLE
     Indication: PNEUMONIA PNEUMOCOCCAL
     Dosage: 30 MG
     Route: 065
  8. CARFILZOMIB [Suspect]
     Active Substance: CARFILZOMIB
     Indication: PLASMA CELL MYELOMA
     Dosage: 20 MG/M2, TWICE WEEKLY ON DAYS 1 AND 2
     Route: 042
     Dates: start: 20201105, end: 20201105
  9. ELIQUIS [Concomitant]
     Active Substance: APIXABAN
     Indication: THROMBOPHLEBITIS
     Dosage: 2.5 MG
     Route: 065

REACTIONS (2)
  - Febrile bone marrow aplasia [Recovered/Resolved]
  - Pyrexia [Recovered/Resolved]

NARRATIVE: CASE EVENT DATE: 20201108
